FAERS Safety Report 18726539 (Version 1)
Quarter: 2021Q1

REPORT INFORMATION
  Report Type: Spontaneous
  Country: JP (occurrence: JP)
  Receive Date: 20210111
  Receipt Date: 20210111
  Transmission Date: 20210419
  Serious: Yes (Hospitalization)
  Sender: FDA-Public Use
  Company Number: JP-JNJFOC-A-CH2018-178473

PATIENT
  Age: 12 Year
  Sex: Male
  Weight: 29.65 kg

DRUGS (18)
  1. ADCIRCA [Concomitant]
     Active Substance: TADALAFIL
     Indication: PULMONARY ARTERIAL HYPERTENSION
     Dosage: 20 MG, QD
     Route: 048
  2. TRANSAMIN [Concomitant]
     Active Substance: TRANEXAMIC ACID
     Indication: UPPER RESPIRATORY TRACT INFLAMMATION
     Dosage: 900 MG, QD
     Dates: start: 20180914, end: 20180919
  3. UPTRAVI [Suspect]
     Active Substance: SELEXIPAG
     Dosage: 0.2 MG, BID
     Route: 048
     Dates: start: 20180820, end: 20180911
  4. UPTRAVI [Suspect]
     Active Substance: SELEXIPAG
     Dosage: 0.6 MG, 0.4 MG, BID
     Route: 048
     Dates: start: 20190116, end: 20190212
  5. VOLIBRIS [Concomitant]
     Active Substance: AMBRISENTAN
     Indication: PULMONARY ARTERIAL HYPERTENSION
     Dosage: 2.5 MG, QD
  6. UPTRAVI [Suspect]
     Active Substance: SELEXIPAG
     Dosage: 0.4 MG, BID
     Route: 048
     Dates: start: 20190213
  7. FUROSEMIDE. [Concomitant]
     Active Substance: FUROSEMIDE
     Dosage: 40 MG, QD
  8. ALDACTONE [Concomitant]
     Active Substance: SPIRONOLACTONE
     Dosage: 40 MG, QD
     Dates: end: 20180821
  9. ZITHROMAC [Concomitant]
     Active Substance: AZITHROMYCIN DIHYDRATE
     Indication: UPPER RESPIRATORY TRACT INFLAMMATION
     Dosage: 300 MG, QD
     Dates: start: 20180915, end: 20180917
  10. UPTRAVI [Suspect]
     Active Substance: SELEXIPAG
     Indication: PULMONARY ARTERIAL HYPERTENSION
     Dosage: 0.1 MG, BID
     Route: 048
     Dates: start: 20180817, end: 20180819
  11. WARFARIN [Suspect]
     Active Substance: WARFARIN
     Indication: HYPOPLASTIC LEFT HEART SYNDROME
     Dosage: 1.2 MG, QD
     Route: 048
  12. SPIRONOLACTONE. [Concomitant]
     Active Substance: SPIRONOLACTONE
     Dosage: 75 MG, QD
     Dates: start: 20180817
  13. FUROSEMIDE. [Concomitant]
     Active Substance: FUROSEMIDE
     Dosage: 60 MG, QD
     Dates: start: 20180817
  14. UPTRAVI [Suspect]
     Active Substance: SELEXIPAG
     Dosage: 04 MG, 02 MG, QD
     Route: 048
     Dates: start: 20180912, end: 20180925
  15. UPTRAVI [Suspect]
     Active Substance: SELEXIPAG
     Dosage: 0.4 MG, BID
     Route: 048
     Dates: start: 20180926, end: 20190115
  16. L?CARBOCYSTEINE [Concomitant]
     Active Substance: CARBOCYSTEINE
     Indication: UPPER RESPIRATORY TRACT INFLAMMATION
     Dosage: 900 MG, QD
     Dates: start: 20180914, end: 20180919
  17. ASACOL [Concomitant]
     Active Substance: MESALAMINE
     Indication: PROTEIN-LOSING GASTROENTEROPATHY
     Dosage: 800 MG, QD
     Dates: end: 20190522
  18. PULSMARIN A [Concomitant]
     Active Substance: AMBROXOL HYDROCHLORIDE
     Indication: UPPER RESPIRATORY TRACT INFLAMMATION
     Dosage: 27 MG, QD
     Dates: start: 20180914, end: 20180919

REACTIONS (8)
  - Off label use [Unknown]
  - Malaise [Recovering/Resolving]
  - Congenital arterial malformation [Recovered/Resolved]
  - Pain in jaw [Recovering/Resolving]
  - Headache [Recovering/Resolving]
  - Haematochezia [Recovered/Resolved]
  - Protein-losing gastroenteropathy [Not Recovered/Not Resolved]
  - Upper respiratory tract inflammation [Recovered/Resolved]

NARRATIVE: CASE EVENT DATE: 20180819
